FAERS Safety Report 6091540-0 (Version None)
Quarter: 2009Q1

REPORT INFORMATION
  Report Type: 
  Country: None (occurrence: None)
  Receive Date: 20090225
  Receipt Date: 20090218
  Transmission Date: 20090719
  Serious: Yes (Other)
  Sender: FDA-Public Use
  Company Number: PHBS2008ES05419

PATIENT
  Age: 54 Year
  Sex: Female

DRUGS (2)
  1. ZOMETA [Suspect]
     Indication: BONE PAIN
     Dosage: 4 MG, TIW
     Route: 042
     Dates: start: 20040101, end: 20050801
  2. ZOMETA [Suspect]
     Indication: MULTIPLE MYELOMA

REACTIONS (10)
  - BONE DEBRIDEMENT [None]
  - ORTHOPEDIC PROCEDURE [None]
  - OSTEOLYSIS [None]
  - OSTEONECROSIS [None]
  - PAIN IN JAW [None]
  - PATHOLOGICAL FRACTURE [None]
  - PRIMARY SEQUESTRUM [None]
  - SEQUESTRECTOMY [None]
  - SWELLING [None]
  - TOOTH EXTRACTION [None]
